FAERS Safety Report 14882004 (Version 1)
Quarter: 2018Q2

REPORT INFORMATION
  Report Type: Spontaneous
  Country: CH (occurrence: CH)
  Receive Date: 20180511
  Receipt Date: 20180511
  Transmission Date: 20180711
  Serious: Yes (Hospitalization)
  Sender: FDA-Public Use
  Company Number: CH-PFIZER INC-2018189560

PATIENT
  Age: 70 Year
  Sex: Female
  Weight: 58.9 kg

DRUGS (13)
  1. IBRANCE [Suspect]
     Active Substance: PALBOCICLIB
     Indication: INVASIVE BREAST CARCINOMA
     Dosage: 125 MG, 1X/DAY (ADMINISTERED AT A 3-WEEK CYCLE, WITH A BREAK OF ONE WEEK BETWEEN A CYCLE AND OTHER)
     Route: 048
     Dates: start: 20180301, end: 20180419
  2. LIPANTHYL [Suspect]
     Active Substance: FENOFIBRATE
     Indication: HYPERCHOLESTEROLAEMIA
     Dosage: 10 MG, 1X/DAY (LONG-TERM TREATMENT, IN PLACE FOR SEVERAL YEARS)
     Route: 048
  3. EZETROL [Concomitant]
     Active Substance: EZETIMIBE
     Indication: HYPERCHOLESTEROLAEMIA
     Dosage: 10 MG, 1X/DAY (LONG-TERM TREATMENT IN PLACE FOR SEVERAL YEARS)
     Route: 048
  4. VI-DE 3 [Concomitant]
     Active Substance: CHOLECALCIFEROL
     Dosage: 1000 IU, 1X/DAY (LONG-TERM TREATMENT, IN PLACE FOR SEVERAL YEARS)
     Route: 048
  5. PLAVIX [Concomitant]
     Active Substance: CLOPIDOGREL BISULFATE
     Indication: THROMBOSIS PROPHYLAXIS
     Dosage: 75 MG, 1X/DAY
     Route: 048
     Dates: start: 2015
  6. FULVESTRANT. [Suspect]
     Active Substance: FULVESTRANT
     Indication: INVASIVE BREAST CARCINOMA
     Dosage: 500 MG, CYCLIC (500 MG THE FIRST DAY, THE 15TH DAY AND THE 29TH DAY, THEN ONCE EVERY 4 WEEKS)
     Route: 030
     Dates: start: 20180131, end: 20180328
  7. ZOLPIDEM [Concomitant]
     Active Substance: ZOLPIDEM\ZOLPIDEM TARTRATE
     Indication: INSOMNIA
     Dosage: 10 MG, 1X/DAY (LONG-TERM TREATMENT, IN PLACE FOR SEVERAL YEARS)
     Route: 048
  8. PANTOPRAZOLE [Concomitant]
     Active Substance: PANTOPRAZOLE
     Dosage: 40 MG, 1X/DAY (LONG-TERM TREATMENT, IN PLACE FOR SEVERAL YEARS)
     Route: 048
  9. MAGNESIOCARD [Concomitant]
     Active Substance: MAGNESIUM ASPARTATE HYDROCHLORIDE
     Dosage: 5 MMOL, 2X/DAY (LONG-TERM TREATMENT, IN PLACE FOR SEVERAL MONTHS)
     Route: 048
  10. VENORUTON /00256001/ [Concomitant]
     Indication: PERIPHERAL VENOUS DISEASE
     Dosage: 500 MG, 2X/DAY (LONG-TERM TREATMENT, IN PLACE FOR SEVERAL YEARS)
     Route: 048
  11. PREGABALIN. [Concomitant]
     Active Substance: PREGABALIN
     Dosage: UNK
     Route: 048
     Dates: start: 201801
  12. MYDOCALM /00293002/ [Concomitant]
     Active Substance: TOLPERISONE HYDROCHLORIDE
     Dosage: UNK (LONG-TERM TREATMENT, IN PLACE FOR SEVERAL YEARS)
     Route: 048
  13. MINALGIN [Concomitant]
     Active Substance: METAMIZOLE
     Dosage: 500 MG, 3X/DAY (LONG-TERM TREATMENT, IN PLACE FOR SEVERAL YEARS)
     Route: 048

REACTIONS (1)
  - Pulmonary embolism [Unknown]

NARRATIVE: CASE EVENT DATE: 20180419
